FAERS Safety Report 4290103-7 (Version None)
Quarter: 2004Q1

REPORT INFORMATION
  Report Type: 
  Country: None (occurrence: None)
  Receive Date: 20040210
  Receipt Date: 20030806
  Transmission Date: 20041129
  Serious: Yes (Hospitalization)
  Sender: FDA-Public Use
  Company Number: US-ROCHE-344358

PATIENT
  Age: 46 Year
  Sex: Male
  Weight: 83.9 kg

DRUGS (1)
  1. FUZEON [Suspect]
     Indication: HIV INFECTION
     Route: 058
     Dates: start: 20030501

REACTIONS (1)
  - FUNGAL INFECTION [None]
